FAERS Safety Report 5086022-9 (Version None)
Quarter: 2006Q3

REPORT INFORMATION
  Report Type: 
  Country: None (occurrence: None)
  Receive Date: 20060817
  Receipt Date: 20060815
  Transmission Date: 20061208
  Serious: Yes (Death, Life-Threatening, Hospitalization, Other)
  Sender: FDA-Public Use
  Company Number: 2006-03-1739

PATIENT
  Age: 62 Year
  Sex: Male

DRUGS (3)
  1. TEMODAL [Suspect]
     Indication: OLIGODENDROGLIOMA
     Dosage: 205 MG QD ORAL
     Route: 048
     Dates: start: 20060303, end: 20060307
  2. CARMUSTINE [Suspect]
     Indication: OLIGODENDROGLIOMA
     Dosage: 280 MG INTRAVENOUS
     Route: 042
     Dates: start: 20060303, end: 20060303
  3. VALPROATE SODIUM [Suspect]

REACTIONS (25)
  - ACUTE RESPIRATORY FAILURE [None]
  - ADRENAL DISORDER [None]
  - BONE MARROW FAILURE [None]
  - BRONCHOPULMONARY ASPERGILLOSIS [None]
  - CONDITION AGGRAVATED [None]
  - COORDINATION ABNORMAL [None]
  - CYANOSIS [None]
  - CYTOMEGALOVIRUS INFECTION [None]
  - DEPRESSED LEVEL OF CONSCIOUSNESS [None]
  - DRUG INTERACTION [None]
  - EMBOLISM [None]
  - FEBRILE NEUTROPENIA [None]
  - HAEMODYNAMIC INSTABILITY [None]
  - HAEMOGLOBIN DECREASED [None]
  - HEMIPARESIS [None]
  - INFECTION IN AN IMMUNOCOMPROMISED HOST [None]
  - LUNG DISORDER [None]
  - PNEUMOCOCCAL INFECTION [None]
  - PNEUMOCYSTIS JIROVECI INFECTION [None]
  - PSEUDOMONAS INFECTION [None]
  - RENAL IMPAIRMENT [None]
  - RESPIRATORY ALKALOSIS [None]
  - SEPTIC SHOCK [None]
  - SKIN DISORDER [None]
  - URINARY TRACT INFECTION [None]
